FAERS Safety Report 21554437 (Version 2)
Quarter: 2022Q4

REPORT INFORMATION
  Report Type: Spontaneous
  Country: IL (occurrence: IL)
  Receive Date: 20221104
  Receipt Date: 20221115
  Transmission Date: 20230113
  Serious: Yes (Life-Threatening, Hospitalization, Other)
  Sender: FDA-Public Use
  Company Number: IL-009507513-2210ISR009682

PATIENT
  Age: 26 Year
  Sex: Male

DRUGS (1)
  1. BRIDION [Suspect]
     Active Substance: SUGAMMADEX

REACTIONS (3)
  - Anaphylactic shock [Recovered/Resolved]
  - Pulmonary oedema [Recovered/Resolved]
  - Rash [Unknown]

NARRATIVE: CASE EVENT DATE: 20221001
